FAERS Safety Report 9387779 (Version 1)
Quarter: 2013Q3

REPORT INFORMATION
  Report Type: Spontaneous
  Country: CA (occurrence: None)
  Receive Date: 20130701
  Receipt Date: 20130701
  Transmission Date: 20140515
  Serious: Yes (Death, Hospitalization, Other)
  Sender: FDA-Public Use
  Company Number: COR_00013_2013

PATIENT
  Sex: Male

DRUGS (2)
  1. LOMUSTINE [Suspect]
     Indication: GLIOBLASTOMA
     Route: 048
     Dates: start: 20121001, end: 20121001
  2. BLINDED STUDY DRUG - TGFB RI KINASE INHIBITOR [Suspect]
     Indication: GLIOBLASTOMA
     Dosage: (DF)
     Dates: start: 20120925, end: 20121008

REACTIONS (12)
  - Insomnia [None]
  - Condition aggravated [None]
  - Neoplasm progression [None]
  - Agitation [None]
  - Confusional state [None]
  - Panic disorder [None]
  - Restless legs syndrome [None]
  - Psychotic disorder [None]
  - Restlessness [None]
  - Disorientation [None]
  - Aggression [None]
  - Convulsion [None]
